FAERS Safety Report 25530857 (Version 2)
Quarter: 2025Q4

REPORT INFORMATION
  Report Type: Spontaneous
  Country: US (occurrence: US)
  Receive Date: 20250708
  Receipt Date: 20251006
  Transmission Date: 20260117
  Serious: Yes (Life-Threatening, Hospitalization, Other)
  Sender: CIPLA
  Company Number: US-MLMSERVICE-20250620-PI549151-00058-1

PATIENT

DRUGS (6)
  1. TROSPIUM [Suspect]
     Active Substance: TROSPIUM
     Indication: Product used for unknown indication
     Dosage: 20 MILLIGRAM, BID (EVERY 12 HOURS) (20MG ORALLY TWICE DAILY)
     Route: 048
  2. ATROPINE [Suspect]
     Active Substance: ATROPINE
     Indication: Salivary hypersecretion
     Dosage: 0.84 MILLIGRAM, TID (EVERY 8 HOURS) (ON HOSPITAL DAY 2, 1% OPHTHALMIC SOLUTION 1-2 DROPS SUBLINGUALL
     Route: 060
  3. BACLOFEN [Concomitant]
     Active Substance: BACLOFEN
     Indication: Product used for unknown indication
     Dosage: 40 MILLIGRAM, TID (EVERY 8 HOURS) (40MG ORALLY THRICE DAILY)
     Route: 048
  4. DANTROLENE [Concomitant]
     Active Substance: DANTROLENE
     Indication: Product used for unknown indication
     Dosage: 25 MILLIGRAM, TID (EVERY 8 HOURS) (25MG ORALLY THRICE DAILY)
     Route: 048
  5. GABAPENTIN [Concomitant]
     Active Substance: GABAPENTIN
     Indication: Product used for unknown indication
     Dosage: 500 MILLIGRAM, TID (EVRY 8 HOURS) (1500MG ORALLY IN THREE DIVIDED DOSES)
     Route: 048
  6. VENLAFAXINE [Concomitant]
     Active Substance: VENLAFAXINE HYDROCHLORIDE
     Indication: Product used for unknown indication
     Dosage: 150 MILLIGRAM, QD (EXTENDED RELEASE 150MG ORALLY DAILY)
     Route: 048

REACTIONS (4)
  - Muscle rigidity [Recovered/Resolved]
  - Anisocoria [Recovered/Resolved]
  - Increased dose administered [Unknown]
  - Anticholinergic syndrome [Recovered/Resolved]
